FAERS Safety Report 21572982 (Version 1)
Quarter: 2022Q4

REPORT INFORMATION
  Report Type: Spontaneous
  Country: US (occurrence: None)
  Receive Date: 20221109
  Receipt Date: 20221109
  Transmission Date: 20230113
  Serious: Yes (Other)
  Sender: FDA-Public Use
  Company Number: None

PATIENT

DRUGS (1)
  1. ENOXAPARIN [Suspect]
     Active Substance: ENOXAPARIN

REACTIONS (4)
  - Device safety feature issue [None]
  - Device malfunction [None]
  - Limb injury [None]
  - Injury associated with device [None]

NARRATIVE: CASE EVENT DATE: 20221024
